FAERS Safety Report 19681505 (Version 1)
Quarter: 2021Q3

REPORT INFORMATION
  Report Type: Spontaneous
  Country: US (occurrence: US)
  Receive Date: 20210810
  Receipt Date: 20210810
  Transmission Date: 20211014
  Serious: Yes (Life-Threatening, Hospitalization)
  Sender: FDA-Public Use
  Company Number: US-ALLERGAN-2127605US

PATIENT
  Sex: Male

DRUGS (2)
  1. CARBIDOPA LEVODOPA [Concomitant]
     Active Substance: CARBIDOPA\LEVODOPA
     Indication: PARKINSON^S DISEASE
  2. BOTOX [Suspect]
     Active Substance: ONABOTULINUMTOXINA
     Indication: DROOLING
     Dosage: UNK UNK, SINGLE

REACTIONS (3)
  - Aspiration [Unknown]
  - Cardiac disorder [Unknown]
  - Off label use [Unknown]
